FAERS Safety Report 7883554-2 (Version None)
Quarter: 2011Q4

REPORT INFORMATION
  Report Type: 
  Country: None (occurrence: None)
  Receive Date: 20111031
  Receipt Date: 20111017
  Transmission Date: 20120403
  Serious: Yes (Other)
  Sender: FDA-Public Use
  Company Number: FK201102378

PATIENT
  Age: 61 Year
  Sex: Female
  Weight: 86.8 kg

DRUGS (8)
  1. BIBF 1120 (BIBF 1120) (BIBF 1120) [Suspect]
     Indication: MALIGNANT PERITONEAL NEOPLASM
     Dosage: 200 MG, ORAL; 150 MG, ORAL
     Route: 048
     Dates: start: 20100915, end: 20101129
  2. BIBF 1120 (BIBF 1120) (BIBF 1120) [Suspect]
     Indication: MALIGNANT PERITONEAL NEOPLASM
     Dosage: 200 MG, ORAL; 150 MG, ORAL
     Route: 048
     Dates: start: 20100507, end: 20100825
  3. CARBOPLATIN [Suspect]
     Indication: CHEMOTHERAPY
     Dosage: INTRAVENOUS (NOT OTHERWISE SPECIFIED)
     Route: 042
     Dates: start: 20100916, end: 20100916
  4. CARBOPLATIN [Suspect]
     Indication: CHEMOTHERAPY
     Dosage: INTRAVENOUS (NOT OTHERWISE SPECIFIED)
     Route: 042
     Dates: start: 20100506, end: 20100506
  5. PACLITAXEL [Suspect]
     Indication: CHEMOTHERAPY
     Dosage: INTRAVENOUS (NOT OTHERWISE SPECIFIED)
     Route: 042
     Dates: start: 20100916, end: 20100916
  6. PACLITAXEL [Suspect]
     Indication: CHEMOTHERAPY
     Dosage: INTRAVENOUS (NOT OTHERWISE SPECIFIED)
     Route: 042
     Dates: start: 20100506, end: 20100506
  7. CENTYL MITE MED KALIUMKLORID (SALURES-K) [Concomitant]
  8. SIMVASTATIN [Concomitant]

REACTIONS (3)
  - HYPERTENSION [None]
  - PULMONARY EMBOLISM [None]
  - DIARRHOEA [None]
